FAERS Safety Report 5743895-1 (Version None)
Quarter: 2008Q2

REPORT INFORMATION
  Report Type: 
  Country: None (occurrence: None)
  Receive Date: 20080516
  Receipt Date: 20080516
  Transmission Date: 20081010
  Serious: Yes (Life-Threatening, Hospitalization)
  Sender: FDA-Public Use
  Company Number: None

PATIENT
  Age: 58 Year
  Sex: Male
  Weight: 83.0083 kg

DRUGS (1)
  1. DIGITEK .125 MYLAN PHARMACEUTICALS [Suspect]
     Indication: HEART RATE IRREGULAR
     Dosage: ONE TABLET EVERY OTHER DAY PO
     Route: 048
     Dates: start: 20060906, end: 20061220

REACTIONS (5)
  - ATRIOVENTRICULAR BLOCK COMPLETE [None]
  - DIALYSIS [None]
  - DYSPNOEA [None]
  - LOSS OF CONSCIOUSNESS [None]
  - RENAL FAILURE [None]
